FAERS Safety Report 18243088 (Version 1)
Quarter: 2020Q3

REPORT INFORMATION
  Report Type: Spontaneous
  Country: US (occurrence: US)
  Receive Date: 20200908
  Receipt Date: 20200908
  Transmission Date: 20201103
  Serious: No
  Sender: FDA-Public Use
  Company Number: None

PATIENT
  Age: 71 Year
  Sex: Female
  Weight: 127.17 kg

DRUGS (17)
  1. MOBIC [Concomitant]
     Active Substance: MELOXICAM
  2. MAGNESIUM [Concomitant]
     Active Substance: MAGNESIUM
  3. LEVOTHYROXINE 150MCG [Concomitant]
     Active Substance: LEVOTHYROXINE
  4. TRAMADOL ER 100MG [Concomitant]
  5. PEPCID 20MG [Concomitant]
  6. OMEPRAZOLE 20MG [Concomitant]
     Active Substance: OMEPRAZOLE
  7. ENTACAPONE. [Suspect]
     Active Substance: ENTACAPONE
  8. VITAMIN D3 [Concomitant]
     Active Substance: CHOLECALCIFEROL
  9. COENZYME Q?10 [Concomitant]
  10. SINEMET 25?100MG [Concomitant]
  11. ARNICA MONTANA. [Concomitant]
     Active Substance: HOMEOPATHICS
  12. KISQALI [Suspect]
     Active Substance: RIBOCICLIB
     Indication: BREAST CANCER FEMALE
     Route: 048
     Dates: start: 20190930
  13. GABAPENTIN 600MG [Concomitant]
     Active Substance: GABAPENTIN
  14. NORCO 5?325MG [Concomitant]
  15. SENNA [Concomitant]
     Active Substance: SENNA LEAF\SENNOSIDES\SENNOSIDES A AND B
  16. METHOCARBAMOL. [Concomitant]
     Active Substance: METHOCARBAMOL
  17. ENTACAPONE. [Concomitant]
     Active Substance: ENTACAPONE

REACTIONS (1)
  - Neuropathy peripheral [None]

NARRATIVE: CASE EVENT DATE: 20200908
